FAERS Safety Report 5446061-2 (Version None)
Quarter: 2007Q3

REPORT INFORMATION
  Report Type: 
  Country: None (occurrence: None)
  Receive Date: 20070907
  Receipt Date: 20070829
  Transmission Date: 20080115
  Serious: Yes (Other)
  Sender: FDA-Public Use
  Company Number: SE-JNJFOC-20070604879

PATIENT
  Sex: Female
  Weight: 60.3 kg

DRUGS (3)
  1. REMICADE [Suspect]
     Indication: RHEUMATOID ARTHRITIS
     Route: 042
  2. TENORMIN [Concomitant]
     Route: 048
     Dates: start: 20030101
  3. PREDNISOLONE [Concomitant]
     Route: 048
     Dates: start: 20070208

REACTIONS (1)
  - RHEUMATOID ARTHRITIS [None]
